FAERS Safety Report 20561138 (Version 1)
Quarter: 2022Q1

REPORT INFORMATION
  Report Type: Spontaneous
  Country: US (occurrence: US)
  Receive Date: 20220307
  Receipt Date: 20220307
  Transmission Date: 20220424
  Serious: No
  Sender: FDA-Public Use
  Company Number: US-PFIZER INC-202200340483

PATIENT
  Sex: Female

DRUGS (2)
  1. NORVASC [Interacting]
     Active Substance: AMLODIPINE BESYLATE
     Dosage: UNK
  2. PAXLOVID [Interacting]
     Active Substance: NIRMATRELVIR\RITONAVIR
     Indication: COVID-19 treatment
     Dosage: UNK

REACTIONS (2)
  - Drug interaction [Unknown]
  - Drug level increased [Unknown]
